FAERS Safety Report 4856952-9 (Version None)
Quarter: 2005Q4

REPORT INFORMATION
  Report Type: 
  Country: None (occurrence: None)
  Receive Date: 20051219
  Receipt Date: 20041202
  Transmission Date: 20060501
  Serious: No
  Sender: FDA-Public Use
  Company Number: US-GLAXOSMITHKLINE-A0535835A

PATIENT
  Age: 67 Year
  Sex: Female

DRUGS (3)
  1. NICODERM CQ [Suspect]
     Dates: start: 20041128
  2. DIAVAN [Concomitant]
  3. COREG [Concomitant]

REACTIONS (4)
  - ABNORMAL DREAMS [None]
  - COLD SWEAT [None]
  - COUGH [None]
  - HYPERHIDROSIS [None]
